FAERS Safety Report 15159477 (Version 2)
Quarter: 2018Q3

REPORT INFORMATION
  Report Type: Report from Study
  Country: US (occurrence: US)
  Receive Date: 20180718
  Receipt Date: 20180801
  Transmission Date: 20181010
  Serious: Yes (Hospitalization, Other)
  Sender: FDA-Public Use
  Company Number: US-AMGEN-USASP2018097400

PATIENT
  Age: 82 Year
  Sex: Female

DRUGS (22)
  1. PROLIA [Concomitant]
     Active Substance: DENOSUMAB
     Indication: OSTEOPOROSIS
     Dosage: UNK, Q6MO
     Route: 065
  2. DIGOXIN. [Concomitant]
     Active Substance: DIGOXIN
     Indication: CARDIAC DISORDER
  3. MULTIVITAMIN [Concomitant]
     Active Substance: VITAMINS
  4. ZADITOR [Concomitant]
     Active Substance: KETOTIFEN FUMARATE
  5. ALLOPURINOL. [Concomitant]
     Active Substance: ALLOPURINOL
     Indication: GOUT
  6. FLUTICASONE PROPIONATE. [Concomitant]
     Active Substance: FLUTICASONE PROPIONATE
  7. REPATHA [Suspect]
     Active Substance: EVOLOCUMAB
     Dosage: UNK
     Route: 065
     Dates: start: 201802, end: 201807
  8. WARFARIN [Concomitant]
     Active Substance: WARFARIN
     Dosage: SUNDAY AND WEDNESDAYS 9 MG, AND OTHER DAYS 6 MG
  9. CENTRUM [Concomitant]
     Active Substance: VITAMINS
  10. PRIMIDONE. [Concomitant]
     Active Substance: PRIMIDONE
     Indication: ESSENTIAL TREMOR
  11. VITAMIN D [Concomitant]
     Active Substance: CHOLECALCIFEROL
  12. TYLENOL [Concomitant]
     Active Substance: ACETAMINOPHEN
     Indication: CLUSTER HEADACHE
     Dosage: UNK UNK, AS NECESSARY
  13. LISINOPRIL. [Concomitant]
     Active Substance: LISINOPRIL
  14. REPATHA [Suspect]
     Active Substance: EVOLOCUMAB
     Indication: BLOOD CHOLESTEROL ABNORMAL
     Dosage: 140 MG, Q2WK
     Route: 065
     Dates: start: 2017
  15. FEXOFENADINE [Concomitant]
     Active Substance: FEXOFENADINE\FEXOFENADINE HYDROCHLORIDE
  16. MAGNESIUM [Concomitant]
     Active Substance: MAGNESIUM
     Indication: MUSCLE SPASMS
     Dosage: UNK
     Dates: start: 2017, end: 2017
  17. ICAPS [Concomitant]
     Active Substance: MINERALS\VITAMINS
  18. FUROSEMIDE. [Concomitant]
     Active Substance: FUROSEMIDE
  19. LEVOTHYROXINE. [Concomitant]
     Active Substance: LEVOTHYROXINE
     Indication: THYROID DISORDER
  20. METOPROLOL SUCCINATE. [Concomitant]
     Active Substance: METOPROLOL SUCCINATE
  21. ALDACTONE [Concomitant]
     Active Substance: SPIRONOLACTONE
     Indication: CARDIAC FAILURE CHRONIC
  22. VITAMIN E [Concomitant]
     Active Substance: .ALPHA.-TOCOPHEROL

REACTIONS (7)
  - Mobility decreased [Recovered/Resolved]
  - Influenza [Recovered/Resolved]
  - Neovascular age-related macular degeneration [Unknown]
  - Asthenia [Unknown]
  - Memory impairment [Unknown]
  - Diarrhoea [Unknown]
  - Myalgia [Recovered/Resolved]

NARRATIVE: CASE EVENT DATE: 2017
